FAERS Safety Report 9416822 (Version 1)
Quarter: 2013Q3

REPORT INFORMATION
  Report Type: Spontaneous
  Country: US (occurrence: US)
  Receive Date: 20130724
  Receipt Date: 20130724
  Transmission Date: 20140515
  Serious: No
  Sender: FDA-Public Use
  Company Number: US-GALDERMA-US13001552

PATIENT
  Age: 64 Year
  Sex: Male
  Weight: 81.72 kg

DRUGS (8)
  1. ORACEA (DOXYCYCLINE, USP) CAPSULES 40 MG [Suspect]
     Indication: ROSACEA
     Route: 048
     Dates: start: 201303
  2. LORATADINE [Concomitant]
     Indication: MULTIPLE ALLERGIES
     Route: 048
  3. VERAMIST [Concomitant]
     Route: 045
  4. LISINOPRIL [Concomitant]
     Indication: BLOOD PRESSURE
     Route: 048
  5. NEXIUM [Concomitant]
     Indication: GASTROOESOPHAGEAL REFLUX DISEASE
     Route: 048
  6. REFRESH ADVANCED EYE DROPS [Concomitant]
     Indication: EYE IRRITATION
     Route: 031
  7. RESTASIS [Concomitant]
     Indication: EYE IRRITATION
     Route: 031
  8. FLUOROMETHOLONE [Concomitant]
     Route: 031

REACTIONS (4)
  - Foreign body sensation in eyes [Not Recovered/Not Resolved]
  - Abnormal sensation in eye [Not Recovered/Not Resolved]
  - Eye inflammation [Not Recovered/Not Resolved]
  - Vision blurred [Not Recovered/Not Resolved]
